FAERS Safety Report 9206241 (Version 2)
Quarter: 2013Q4

REPORT INFORMATION
  Report Type: Spontaneous
  Country: US (occurrence: US)
  Receive Date: 20130403
  Receipt Date: 20131220
  Transmission Date: 20140711
  Serious: Yes (Other)
  Sender: FDA-Public Use
  Company Number: US-BAYER-2013-040058

PATIENT
  Age: 25 Year
  Sex: Female

DRUGS (5)
  1. YAZ [Suspect]
     Dosage: UNK
     Dates: start: 2004, end: 201102
  2. YASMIN [Suspect]
     Dosage: UNK
     Dates: start: 2004, end: 201102
  3. OCELLA [Suspect]
     Dosage: UNK
     Dates: start: 2004, end: 201102
  4. OMEPRAZOLE [Concomitant]
     Dosage: 20 MG, UNK
     Dates: start: 20100122
  5. METOCLOPRAMIDE [Concomitant]
     Dosage: 5 MG, UNK
     Dates: start: 20100122

REACTIONS (7)
  - Cholelithiasis [Recovered/Resolved]
  - Cholecystitis chronic [None]
  - Injury [Recovered/Resolved]
  - Pain [Recovered/Resolved]
  - Emotional distress [None]
  - Anxiety [None]
  - Psychological trauma [None]
